FAERS Safety Report 15948434 (Version 2)
Quarter: 2019Q2

REPORT INFORMATION
  Report Type: Spontaneous
  Country: JP (occurrence: JP)
  Receive Date: 20190212
  Receipt Date: 20190520
  Transmission Date: 20190711
  Serious: Yes (Other)
  Sender: FDA-Public Use
  Company Number: JP-SANIK-2019SA035748AA

PATIENT
  Age: 12 Year
  Sex: Female

DRUGS (1)
  1. FEXOFENADINA SANIK 60MG [Suspect]
     Active Substance: FEXOFENADINE HYDROCHLORIDE
     Indication: RASH
     Dosage: 60 MG, BID
     Route: 048
     Dates: start: 20180622, end: 20181210

REACTIONS (2)
  - Alopecia areata [Not Recovered/Not Resolved]
  - Condition aggravated [Not Recovered/Not Resolved]

NARRATIVE: CASE EVENT DATE: 201809
